FAERS Safety Report 5447172-8 (Version None)
Quarter: 2007Q3

REPORT INFORMATION
  Report Type: 
  Country: None (occurrence: None)
  Receive Date: 20070910
  Receipt Date: 20070903
  Transmission Date: 20080115
  Serious: Yes (Other)
  Sender: FDA-Public Use
  Company Number: PHBS2007ZA14048

PATIENT
  Age: 68 Year
  Sex: Female

DRUGS (6)
  1. TAREG [Suspect]
     Indication: HYPERTENSION
     Dosage: 80 MG, QD
     Route: 048
  2. TAREG [Suspect]
     Dosage: 80 MG, BID
     Route: 048
     Dates: start: 20070818, end: 20070818
  3. TAREG [Suspect]
     Dosage: 80 MG, QD
     Route: 048
     Dates: start: 20070819, end: 20070820
  4. VITAMINS [Concomitant]
  5. CALCIUM [Concomitant]
  6. FISH OIL [Concomitant]

REACTIONS (4)
  - DEEP VEIN THROMBOSIS [None]
  - DRUG INEFFECTIVE [None]
  - LIMB DISCOMFORT [None]
  - PAIN IN EXTREMITY [None]
